FAERS Safety Report 5757948-5 (Version None)
Quarter: 2008Q2

REPORT INFORMATION
  Report Type: 
  Country: None (occurrence: None)
  Receive Date: 20080602
  Receipt Date: 20080602
  Transmission Date: 20081010
  Serious: Yes (Life-Threatening, Hospitalization)
  Sender: FDA-Public Use
  Company Number: None

PATIENT
  Age: 29 Year
  Sex: Female
  Weight: 95.2554 kg

DRUGS (2)
  1. YAZ [Suspect]
     Indication: CONTRACEPTION
     Dosage: 1 PILL QD PO
     Route: 048
     Dates: start: 20071201, end: 20080503
  2. YAZ [Concomitant]

REACTIONS (5)
  - DEEP VEIN THROMBOSIS [None]
  - EMBOLISM [None]
  - HAEMOPTYSIS [None]
  - PULMONARY EMBOLISM [None]
  - PULMONARY INFARCTION [None]
